FAERS Safety Report 12607374 (Version 2)
Quarter: 2016Q3

REPORT INFORMATION
  Report Type: Spontaneous
  Country: US (occurrence: US)
  Receive Date: 20160729
  Receipt Date: 20160823
  Transmission Date: 20161109
  Serious: No
  Sender: FDA-Public Use
  Company Number: US-ELI_LILLY_AND_COMPANY-US201607005665

PATIENT
  Age: 56 Year
  Sex: Female

DRUGS (17)
  1. GABAPENTIN. [Interacting]
     Active Substance: GABAPENTIN
     Indication: PRODUCT USED FOR UNKNOWN INDICATION
     Dosage: 900 MG, UNKNOWN
     Route: 065
  2. LANTUS [Concomitant]
     Active Substance: INSULIN GLARGINE
     Dosage: UNK, UNKNOWN
  3. APO-HYDROCORTISONE [Concomitant]
  4. ISOSORBIDE. [Concomitant]
     Active Substance: ISOSORBIDE
  5. QUINAPRIL. [Concomitant]
     Active Substance: QUINAPRIL
  6. TRULICITY [Suspect]
     Active Substance: DULAGLUTIDE
     Indication: TYPE 2 DIABETES MELLITUS
     Dosage: 0.75 MG, WEEKLY (1/W)
     Route: 065
     Dates: start: 201607
  7. METOPROLOL. [Concomitant]
     Active Substance: METOPROLOL
  8. MAGNEESIUM [Concomitant]
     Active Substance: MAGNESIUM
  9. NITROCERIN [Concomitant]
  10. LINZESS [Concomitant]
     Active Substance: LINACLOTIDE
  11. HUMALOG [Concomitant]
     Active Substance: INSULIN LISPRO
     Dosage: UNK, UNKNOWN
  12. AMLODIPINE [Concomitant]
     Active Substance: AMLODIPINE BESYLATE
  13. BACLOFEN. [Concomitant]
     Active Substance: BACLOFEN
  14. PLAVIX [Concomitant]
     Active Substance: CLOPIDOGREL BISULFATE
  15. METHAZOLAMIDE. [Concomitant]
     Active Substance: METHAZOLAMIDE
  16. MYRBETRIQ [Concomitant]
     Active Substance: MIRABEGRON
  17. POTASSIUM CHLORIDE. [Concomitant]
     Active Substance: POTASSIUM CHLORIDE

REACTIONS (7)
  - Drug interaction [Unknown]
  - Urine odour abnormal [Not Recovered/Not Resolved]
  - Weight increased [Not Recovered/Not Resolved]
  - Frequent bowel movements [Not Recovered/Not Resolved]
  - Gait disturbance [Unknown]
  - Nausea [Not Recovered/Not Resolved]
  - Blood glucose increased [Unknown]

NARRATIVE: CASE EVENT DATE: 201607
